FAERS Safety Report 7004054-8 (Version None)
Quarter: 2010Q3

REPORT INFORMATION
  Report Type: 
  Country: None (occurrence: None)
  Receive Date: 20100917
  Receipt Date: 20100902
  Transmission Date: 20110219
  Serious: Yes (Other)
  Sender: FDA-Public Use
  Company Number: 018283

PATIENT
  Sex: Male
  Weight: 109.7705 kg

DRUGS (17)
  1. CIMZIA [Suspect]
     Indication: CROHN'S DISEASE
     Dosage: (400 MG 1X/2 WEEKS SUBCUTANEOUS), (400 MG 1X/MONTH SUBCUTANEOUS), (200 MG 1X/2 WEEKS SUBCUTANEOUS)
     Route: 058
     Dates: start: 20100422, end: 20100508
  2. CIMZIA [Suspect]
     Indication: CROHN'S DISEASE
     Dosage: (400 MG 1X/2 WEEKS SUBCUTANEOUS), (400 MG 1X/MONTH SUBCUTANEOUS), (200 MG 1X/2 WEEKS SUBCUTANEOUS)
     Route: 058
     Dates: start: 20100604, end: 20100702
  3. CIMZIA [Suspect]
     Indication: CROHN'S DISEASE
     Dosage: (400 MG 1X/2 WEEKS SUBCUTANEOUS), (400 MG 1X/MONTH SUBCUTANEOUS), (200 MG 1X/2 WEEKS SUBCUTANEOUS)
     Route: 058
     Dates: start: 20100723
  4. PREDNISONE [Suspect]
     Indication: CROHN'S DISEASE
     Dates: start: 20100626
  5. METHOTREXATE [Suspect]
     Indication: CROHN'S DISEASE
     Dates: start: 20100803, end: 20100824
  6. FLAGYL [Concomitant]
  7. CIPRO [Concomitant]
  8. ZYRTEC [Concomitant]
  9. IRON [Concomitant]
  10. CALCIUM W/VITAMIN D NOS [Concomitant]
  11. COENZYME Q10 /00517201/ [Concomitant]
  12. COUMADIN [Concomitant]
  13. FOLIC ACID [Concomitant]
  14. IMODIUM /01493801/ [Concomitant]
  15. TYLENOL (CAPLET) [Concomitant]
  16. C-VITAMIN [Concomitant]
  17. VITAMIN D [Concomitant]

REACTIONS (11)
  - ABSCESS [None]
  - CONDITION AGGRAVATED [None]
  - CROHN'S DISEASE [None]
  - DEEP VEIN THROMBOSIS [None]
  - FISTULA [None]
  - HYPOVITAMINOSIS [None]
  - INTERNATIONAL NORMALISED RATIO INCREASED [None]
  - IRON DEFICIENCY ANAEMIA [None]
  - MULTIPLE-DRUG RESISTANCE [None]
  - NEPHROLITHIASIS [None]
  - STAPHYLOCOCCAL ABSCESS [None]
